FAERS Safety Report 12441396 (Version 1)
Quarter: 2016Q2

REPORT INFORMATION
  Report Type: Spontaneous
  Country: US (occurrence: US)
  Receive Date: 20160607
  Receipt Date: 20160607
  Transmission Date: 20160815
  Serious: No
  Sender: FDA-Public Use
  Company Number: US-PFIZER INC-2016268530

PATIENT
  Age: 67 Year
  Sex: Female

DRUGS (1)
  1. IBRANCE [Suspect]
     Active Substance: PALBOCICLIB
     Indication: NEOPLASM
     Dosage: 100 MG, CYCLIC, 1 CAPSULE DAILY DOR 21 DAYS AND THEN 7 DAYS OFF
     Route: 048
     Dates: start: 20150903

REACTIONS (2)
  - Alopecia [Unknown]
  - Oral pain [Unknown]
